FAERS Safety Report 11781531 (Version 2)
Quarter: 2015Q4

REPORT INFORMATION
  Report Type: Report from Study
  Country: US (occurrence: US)
  Receive Date: 20151126
  Receipt Date: 20151127
  Transmission Date: 20160305
  Serious: Yes (Other)
  Sender: FDA-Public Use
  Company Number: PHEH2015US023825

PATIENT
  Sex: Female

DRUGS (1)
  1. GLEEVEC [Suspect]
     Active Substance: IMATINIB MESYLATE
     Indication: GASTROINTESTINAL STROMAL TUMOUR
     Dosage: 400 MG, ONCE DAILY
     Route: 048
     Dates: start: 20150924

REACTIONS (3)
  - Neoplasm malignant [Unknown]
  - Laboratory test abnormal [Unknown]
  - Second primary malignancy [Unknown]
